FAERS Safety Report 7118501-4 (Version None)
Quarter: 2010Q4

REPORT INFORMATION
  Report Type: 
  Country: None (occurrence: None)
  Receive Date: 20101123
  Receipt Date: 20100104
  Transmission Date: 20110411
  Serious: No
  Sender: FDA-Public Use
  Company Number: US-MYLANLABS-2010S1000177

PATIENT
  Age: 35 Year
  Sex: Male
  Weight: 102.06 kg

DRUGS (3)
  1. CLONAZEPAM [Suspect]
     Indication: ANXIETY
     Route: 048
     Dates: start: 20100102, end: 20100102
  2. NASONEX [Concomitant]
     Indication: SINUS DISORDER
     Route: 045
  3. OMEPRAZOLE [Concomitant]
     Indication: GASTROOESOPHAGEAL REFLUX DISEASE
     Route: 048

REACTIONS (3)
  - ANXIETY [None]
  - DRUG INEFFECTIVE [None]
  - PALLOR [None]
